FAERS Safety Report 19419836 (Version 5)
Quarter: 2022Q3

REPORT INFORMATION
  Report Type: Report from Study
  Country: US (occurrence: US)
  Receive Date: 20210615
  Receipt Date: 20220930
  Transmission Date: 20221026
  Serious: Yes (Life-Threatening, Hospitalization, Other)
  Sender: FDA-Public Use
  Company Number: US-EXELIXIS-XL18421041143

PATIENT

DRUGS (13)
  1. CABOZANTINIB [Suspect]
     Active Substance: CABOZANTINIB
     Indication: Renal cell carcinoma
     Dosage: 40 MG, QD
     Route: 048
     Dates: start: 20200716
  2. CABOZANTINIB [Suspect]
     Active Substance: CABOZANTINIB
     Indication: Adenocarcinoma
  3. NIVOLUMAB [Suspect]
     Active Substance: NIVOLUMAB
     Indication: Renal cell carcinoma
     Dosage: 480 MG, Q4WEEKS
     Route: 042
     Dates: start: 20200716
  4. NIVOLUMAB [Suspect]
     Active Substance: NIVOLUMAB
     Indication: Adenocarcinoma
  5. ATORVASTATIN [Concomitant]
     Active Substance: ATORVASTATIN
     Dosage: UNK
  6. AMLODIPINE [Concomitant]
     Active Substance: AMLODIPINE BESYLATE
     Dosage: UNK
  7. SPIRONOLACTONE [Concomitant]
     Active Substance: SPIRONOLACTONE
     Dosage: UNK
  8. CARVEDILOL [Concomitant]
     Active Substance: CARVEDILOL
     Dosage: UNK
  9. LOSARTAN [Concomitant]
     Active Substance: LOSARTAN
     Dosage: UNK
  10. OMEPRAZOLE [Concomitant]
     Active Substance: OMEPRAZOLE
     Dosage: UNK
  11. APIXABAN [Concomitant]
     Active Substance: APIXABAN
     Dosage: UNK
  12. ONDANSETRON [Concomitant]
     Active Substance: ONDANSETRON
     Dosage: UNK
  13. HYDROCORTISONE [Concomitant]
     Active Substance: HYDROCORTISONE
     Dosage: UNK

REACTIONS (13)
  - Clostridium difficile colitis [Recovered/Resolved]
  - Myocardial infarction [Not Recovered/Not Resolved]
  - Ejection fraction decreased [Not Recovered/Not Resolved]
  - Cardiac failure [Not Recovered/Not Resolved]
  - Acute kidney injury [Recovered/Resolved]
  - Diarrhoea [Recovered/Resolved]
  - Chronic kidney disease [Recovered/Resolved]
  - Adrenal insufficiency [Not Recovered/Not Resolved]
  - Sepsis [Recovered/Resolved]
  - Hypoxia [Recovered/Resolved]
  - Blood creatinine increased [Not Recovered/Not Resolved]
  - Hypotension [Recovered/Resolved]
  - Dehydration [Recovered/Resolved]

NARRATIVE: CASE EVENT DATE: 20210510
